FAERS Safety Report 16538399 (Version 1)
Quarter: 2019Q3

REPORT INFORMATION
  Report Type: Spontaneous
  Country: DE (occurrence: DE)
  Receive Date: 20190708
  Receipt Date: 20190708
  Transmission Date: 20191004
  Serious: Yes (Other)
  Sender: FDA-Public Use
  Company Number: DE-SUN PHARMACEUTICAL INDUSTRIES LTD-2019RR-212973

PATIENT
  Age: 48 Year
  Weight: 76 kg

DRUGS (2)
  1. SERTRALIN BASICS 50MG FILMTABLETTEN [Suspect]
     Active Substance: SERTRALINE HYDROCHLORIDE
     Indication: PRODUCT USED FOR UNKNOWN INDICATION
     Dosage: AB 14.3.2019 BIS 30.3.2019 50MG SERTRALIN
     Route: 048
     Dates: start: 20190314, end: 20190330
  2. SERTRALIN BASICS 50MG FILMTABLETTEN [Suspect]
     Active Substance: SERTRALINE HYDROCHLORIDE
     Dosage: VOM 1.3.2019 BIS 13.3.2019 25MG
     Route: 048
     Dates: start: 20190301, end: 20190313

REACTIONS (7)
  - Dyskinesia [Unknown]
  - Serotonin syndrome [Recovering/Resolving]
  - Somnolence [Not Recovered/Not Resolved]
  - Euphoric mood [Unknown]
  - Partner stress [Unknown]
  - Suicidal ideation [Unknown]
  - Seizure [Recovering/Resolving]

NARRATIVE: CASE EVENT DATE: 20190330
